FAERS Safety Report 4951416-6 (Version None)
Quarter: 2006Q1

REPORT INFORMATION
  Report Type: 
  Country: None (occurrence: None)
  Receive Date: 20060323
  Receipt Date: 20060316
  Transmission Date: 20060701
  Serious: Yes (Hospitalization)
  Sender: FDA-Public Use
  Company Number: JP-JNJFOC-20060304416

PATIENT
  Sex: Female

DRUGS (7)
  1. MICONAZOLE [Suspect]
     Indication: ORAL CANDIDIASIS
     Route: 048
     Dates: start: 20060202, end: 20060207
  2. WARFARIN SODIUM [Suspect]
     Indication: DRUG USE FOR UNKNOWN INDICATION
     Route: 048
     Dates: start: 20060204, end: 20060224
  3. DIGOXIN [Concomitant]
     Route: 048
  4. DILTIAZEM HCL [Concomitant]
     Indication: ATRIAL FIBRILLATION
  5. TEPRENONE [Concomitant]
     Indication: GASTROENTERITIS
  6. FUROSEMIDE [Concomitant]
  7. ATORVASTATIN CALCIUM [Concomitant]
     Dates: start: 20051014

REACTIONS (3)
  - HAEMORRHAGE SUBCUTANEOUS [None]
  - INTERNATIONAL NORMALISED RATIO INCREASED [None]
  - PARALYSIS [None]
